FAERS Safety Report 6729927-2 (Version None)
Quarter: 2010Q2

REPORT INFORMATION
  Report Type: 
  Country: None (occurrence: None)
  Receive Date: 20100518
  Receipt Date: 20100512
  Transmission Date: 20101027
  Serious: Yes (Death, Hospitalization, Other)
  Sender: FDA-Public Use
  Company Number: PHEH2009US18947

PATIENT
  Sex: Female
  Weight: 99.773 kg

DRUGS (2)
  1. GLEEVEC [Suspect]
     Indication: SYSTEMIC SCLEROSIS
     Dosage: 200 MG, QD
     Route: 048
     Dates: start: 20081201, end: 20090401
  2. COUMADIN [Concomitant]
     Dosage: UNK, UNK

REACTIONS (41)
  - ABDOMINAL DISTENSION [None]
  - ADRENAL DISORDER [None]
  - ANORECTAL OPERATION [None]
  - ARTERIOSCLEROSIS [None]
  - ASCITES [None]
  - ASPIRATION [None]
  - BLISTER [None]
  - CLOSTRIDIUM DIFFICILE COLITIS [None]
  - COLOSTOMY [None]
  - GASTROINTESTINAL ISCHAEMIA [None]
  - HEPATIC CONGESTION [None]
  - HYDROTHORAX [None]
  - HYPERAEMIA [None]
  - HYPOTENSION [None]
  - LARGE INTESTINAL HAEMORRHAGE [None]
  - MUCOSAL ULCERATION [None]
  - MULTI-ORGAN FAILURE [None]
  - MYOCARDIAL FIBROSIS [None]
  - NAUSEA [None]
  - NEOPLASM MALIGNANT [None]
  - PLEURAL EFFUSION [None]
  - PNEUMONIA ASPIRATION [None]
  - PSEUDOMEMBRANOUS COLITIS [None]
  - PULMONARY CONGESTION [None]
  - PULMONARY HAEMORRHAGE [None]
  - PULMONARY OEDEMA [None]
  - RECTAL CANCER [None]
  - RENAL CYST [None]
  - RENAL FAILURE [None]
  - RENAL TUBULAR NECROSIS [None]
  - RESPIRATORY FAILURE [None]
  - SCLERODERMA [None]
  - SCROTAL OEDEMA [None]
  - SEPSIS [None]
  - SHOCK [None]
  - SIGMOIDECTOMY [None]
  - SKIN DISCOLOURATION [None]
  - SKIN LESION [None]
  - SPLEEN CONGESTION [None]
  - THYROID CYST [None]
  - VOMITING [None]
